FAERS Safety Report 7655846-3 (Version None)
Quarter: 2011Q3

REPORT INFORMATION
  Report Type: 
  Country: None (occurrence: None)
  Receive Date: 20110804
  Receipt Date: 20110725
  Transmission Date: 20111222
  Serious: Yes (Other)
  Sender: FDA-Public Use
  Company Number: US-TYCO HEALTHCARE/MALLINCKRODT-T201101461

PATIENT
  Sex: Female

DRUGS (7)
  1. ADVIL LIQUI-GELS [Concomitant]
     Indication: HEADACHE
     Dosage: PRN
  2. LOTENSIN                           /00909102/ [Concomitant]
     Indication: BLOOD PRESSURE INCREASED
     Dosage: 10 MG, QD
     Route: 048
  3. FENTANYL-100 [Suspect]
     Indication: RHEUMATOID ARTHRITIS
  4. FENTANYL-100 [Suspect]
     Indication: FIBROMYALGIA
     Dosage: 75 UG/HR, 1 PATCH Q 48 HOURS
     Route: 062
     Dates: start: 20110716
  5. FENTANYL [Concomitant]
     Dosage: 75 UG/HR, 1 PATCH Q 48 HOURS
     Route: 062
     Dates: start: 20100526, end: 20110701
  6. CYMBALTA [Concomitant]
     Indication: DEPRESSION
     Dosage: 30 MG, QD
     Route: 048
  7. CYMBALTA [Concomitant]
     Indication: INSOMNIA

REACTIONS (6)
  - DEREALISATION [None]
  - WITHDRAWAL SYNDROME [None]
  - CRYING [None]
  - DYSPNOEA [None]
  - PALPITATIONS [None]
  - HEADACHE [None]
